FAERS Safety Report 19015579 (Version 1)
Quarter: 2021Q1

REPORT INFORMATION
  Report Type: Spontaneous
  Country: ES (occurrence: ES)
  Receive Date: 20210316
  Receipt Date: 20210316
  Transmission Date: 20210420
  Serious: Yes (Other)
  Sender: FDA-Public Use
  Company Number: ES-GLAXOSMITHKLINE-ES2021GSK062496

PATIENT
  Age: 32 Year
  Sex: Male

DRUGS (3)
  1. VALACICLOVIR [Suspect]
     Active Substance: VALACYCLOVIR HYDROCHLORIDE
     Indication: HERPES ZOSTER
     Dosage: UNK
     Route: 048
  2. ADALIMUMAB [Concomitant]
     Active Substance: ADALIMUMAB
     Indication: CROHN^S DISEASE
     Dosage: 40 MG, WE
  3. DEXKETOPROFEN [Suspect]
     Active Substance: DEXKETOPROFEN
     Indication: HERPES ZOSTER
     Dosage: UNK

REACTIONS (9)
  - Asthenia [Unknown]
  - Malaise [Unknown]
  - Skin plaque [Unknown]
  - Sebaceous adenitis [Unknown]
  - Erythema multiforme [Unknown]
  - Rash [Unknown]
  - Skin lesion [Recovered/Resolved]
  - Necrosis [Unknown]
  - Lymphocytic infiltration [Unknown]
